FAERS Safety Report 6542918-X (Version None)
Quarter: 2010Q1

REPORT INFORMATION
  Report Type: 
  Country: None (occurrence: None)
  Receive Date: 20100120
  Receipt Date: 20100113
  Transmission Date: 20100710
  Serious: Yes (Hospitalization)
  Sender: FDA-Public Use
  Company Number: JP-ELI_LILLY_AND_COMPANY-JP200909006159

PATIENT
  Age: 65 Year
  Sex: Male

DRUGS (2)
  1. GEMZAR [Suspect]
     Indication: BILE DUCT CANCER
     Dosage: 1200 MG, OTHER
     Route: 042
     Dates: start: 20090901
  2. GEMZAR [Suspect]
     Dosage: 1200 MG, OTHER
     Route: 042

REACTIONS (1)
  - PANCREATITIS [None]
